FAERS Safety Report 9259578 (Version 1)
Quarter: 2013Q2

REPORT INFORMATION
  Report Type: Spontaneous
  Country: US (occurrence: US)
  Receive Date: 20130429
  Receipt Date: 20130429
  Transmission Date: 20140414
  Serious: No
  Sender: FDA-Public Use
  Company Number: US-009507513-1304USA015944

PATIENT
  Age: 16 Year
  Sex: Female

DRUGS (1)
  1. NUVARING [Suspect]
     Dosage: EVERY THREE WEEK IN AND ONE WEEK OUT, 1 RING
     Route: 067
     Dates: start: 20130411

REACTIONS (2)
  - Inappropriate schedule of drug administration [Unknown]
  - Drug ineffective [Unknown]
